FAERS Safety Report 5809933-2 (Version None)
Quarter: 2008Q3

REPORT INFORMATION
  Report Type: 
  Country: None (occurrence: None)
  Receive Date: 20080715
  Receipt Date: 20080707
  Transmission Date: 20090109
  Serious: Yes (Other)
  Sender: FDA-Public Use
  Company Number: HQWYE070806AUG04

PATIENT
  Sex: Female

DRUGS (2)
  1. PREMPRO [Suspect]
  2. PREMARIN [Suspect]
     Dosage: UNKNOWN
     Route: 065

REACTIONS (1)
  - INFLAMMATORY CARCINOMA OF THE BREAST [None]
